FAERS Safety Report 19065222 (Version 4)
Quarter: 2021Q4

REPORT INFORMATION
  Report Type: Report from Study
  Country: US (occurrence: US)
  Receive Date: 20210327
  Receipt Date: 20211120
  Transmission Date: 20220303
  Serious: No
  Sender: FDA-Public Use
  Company Number: NVSC2021US064079

PATIENT
  Sex: Female

DRUGS (1)
  1. FILGRASTIM [Suspect]
     Active Substance: FILGRASTIM
     Indication: Product used for unknown indication
     Dosage: UNK (480MCG/0.8ML 1 SYRINGE)
     Route: 065

REACTIONS (3)
  - Illness [Unknown]
  - Peripheral swelling [Unknown]
  - Arthralgia [Unknown]
